FAERS Safety Report 9518409 (Version 1)
Quarter: 2013Q3

REPORT INFORMATION
  Report Type: Spontaneous
  Country: US (occurrence: None)
  Receive Date: 20130910
  Receipt Date: 20130910
  Transmission Date: 20140515
  Serious: Yes (Death, Other)
  Sender: FDA-Public Use
  Company Number: CO-KP-US-2013-007

PATIENT
  Sex: 0

DRUGS (2)
  1. CLONIDINE [Suspect]
  2. METHYLPHENIDATE [Suspect]

REACTIONS (1)
  - Death [None]
